FAERS Safety Report 7963874-3 (Version None)
Quarter: 2011Q4

REPORT INFORMATION
  Report Type: 
  Country: None (occurrence: None)
  Receive Date: 20111208
  Receipt Date: 20111028
  Transmission Date: 20120403
  Serious: No
  Sender: FDA-Public Use
  Company Number: US-BAYER-2011-106645

PATIENT
  Sex: Female
  Weight: 126.98 kg

DRUGS (10)
  1. ANTIHYPERTENSIVES [Concomitant]
  2. ALEVE (CAPLET) [Suspect]
     Dosage: 2 DF, TID
     Route: 048
     Dates: start: 20111028
  3. FUROSEMIDE [Concomitant]
  4. INSULIN [Concomitant]
  5. CYMBALTA [Concomitant]
  6. XANAX [Concomitant]
  7. MALOXIN [Concomitant]
  8. CHOLESTEROL MEDICATION [Concomitant]
  9. AMLODIPINE [Concomitant]
  10. OMEPRAZOLE [Concomitant]

REACTIONS (1)
  - NO ADVERSE EVENT [None]
